FAERS Safety Report 13009285 (Version 1)
Quarter: 2016Q4

REPORT INFORMATION
  Report Type: Report from Study
  Country: DE (occurrence: DE)
  Receive Date: 20161208
  Receipt Date: 20161208
  Transmission Date: 20170207
  Serious: Yes (Other)
  Sender: FDA-Public Use
  Company Number: DE-JNJFOC-20161204919

PATIENT

DRUGS (2)
  1. DEXAMETHASONE. [Concomitant]
     Active Substance: DEXAMETHASONE
     Indication: ANTIEMETIC SUPPORTIVE CARE
     Route: 065
  2. CAELYX [Suspect]
     Active Substance: DOXORUBICIN HYDROCHLORIDE
     Indication: BREAST CANCER METASTATIC
     Route: 042

REACTIONS (16)
  - Palmar-plantar erythrodysaesthesia syndrome [Unknown]
  - Asthenia [Unknown]
  - Neuropathy peripheral [Unknown]
  - Haemoglobin decreased [Unknown]
  - Neutrophil count decreased [Unknown]
  - Hypersensitivity [Unknown]
  - Cardiotoxicity [Unknown]
  - White blood cell count decreased [Unknown]
  - Dyspnoea [Unknown]
  - Alopecia [Unknown]
  - Platelet count decreased [Unknown]
  - Nausea [Unknown]
  - Stomatitis [Unknown]
  - Pyrexia [Unknown]
  - Infection [Unknown]
  - Constipation [Unknown]
